FAERS Safety Report 8085892 (Version 2)
Quarter: 2013Q3

REPORT INFORMATION
  Report Type: Report from Study
  Country: TR (occurrence: TR)
  Receive Date: 20110811
  Receipt Date: 20130924
  Transmission Date: 20140515
  Serious: Yes (Hospitalization)
  Sender: FDA-Public Use
  Company Number: PHHY2011TR67339

PATIENT
  Age: 16 Year
  Sex: Female
  Weight: 32 kg

DRUGS (3)
  1. EXJADE [Suspect]
     Indication: THALASSAEMIA BETA
     Dosage: 1250 MG, DAILY
     Route: 048
     Dates: start: 2008
  2. EXJADE [Suspect]
     Indication: CHELATION THERAPY
     Dosage: 1500 MG, DAILY
     Route: 048
     Dates: start: 2010
  3. CALCIUM GLUCONATE [Concomitant]
     Dosage: UNK UKN, UNK

REACTIONS (1)
  - Paraesthesia [Recovering/Resolving]
